FAERS Safety Report 7556232-7 (Version None)
Quarter: 2011Q2

REPORT INFORMATION
  Report Type: 
  Country: None (occurrence: None)
  Receive Date: 20110615
  Receipt Date: 20110615
  Transmission Date: 20111010
  Serious: Yes (Disabling)
  Sender: FDA-Public Use
  Company Number: None

PATIENT
  Age: 76 Year
  Sex: Female
  Weight: 56.6996 kg

DRUGS (2)
  1. NORVASC [Suspect]
     Indication: BLOOD PRESSURE INCREASED
     Dosage: 5MG QD PO
     Route: 048
     Dates: start: 20110515, end: 20110601
  2. NORVASC [Suspect]
     Indication: CEREBROVASCULAR ACCIDENT
     Dosage: 5MG QD PO
     Route: 048
     Dates: start: 20110515, end: 20110601

REACTIONS (4)
  - NAUSEA [None]
  - CONFUSIONAL STATE [None]
  - MENTAL STATUS CHANGES [None]
  - SPEECH DISORDER [None]
